FAERS Safety Report 18730276 (Version 1)
Quarter: 2021Q1

REPORT INFORMATION
  Report Type: Spontaneous
  Country: US (occurrence: US)
  Receive Date: 20210112
  Receipt Date: 20210112
  Transmission Date: 20210419
  Serious: No
  Sender: FDA-Public Use
  Company Number: US-PFIZER INC-2021011670

PATIENT
  Age: 39 Year
  Sex: Male
  Weight: 111.13 kg

DRUGS (1)
  1. IBUPROFEN. [Suspect]
     Active Substance: IBUPROFEN
     Indication: HEADACHE
     Dosage: 800 MG (STATED HE TOOK FOUR TABLETS.)

REACTIONS (1)
  - Therapeutic product effect incomplete [Unknown]
